FAERS Safety Report 17762003 (Version 2)
Quarter: 2020Q2

REPORT INFORMATION
  Report Type: Spontaneous
  Country: US (occurrence: US)
  Receive Date: 20200508
  Receipt Date: 20200520
  Transmission Date: 20200714
  Serious: Yes (Other)
  Sender: FDA-Public Use
  Company Number: US-ALLERGAN-2018362US

PATIENT
  Sex: Male

DRUGS (2)
  1. OZURDEX [Suspect]
     Active Substance: DEXAMETHASONE
     Indication: CYSTOID MACULAR OEDEMA
     Dosage: 0.7 MG, SINGLE
     Route: 031
     Dates: start: 20200428, end: 20200428
  2. BETADINE [Concomitant]
     Active Substance: POVIDONE-IODINE
     Indication: POST PROCEDURAL COMPLICATION
     Dosage: UNK
     Route: 061
     Dates: start: 20200503, end: 20200503

REACTIONS (3)
  - Off label use [Unknown]
  - Endophthalmitis [Unknown]
  - Blindness [Not Recovered/Not Resolved]

NARRATIVE: CASE EVENT DATE: 20200503
